FAERS Safety Report 20145283 (Version 1)
Quarter: 2021Q4

REPORT INFORMATION
  Report Type: Spontaneous
  Country: SG (occurrence: SG)
  Receive Date: 20211203
  Receipt Date: 20211203
  Transmission Date: 20220304
  Serious: No
  Sender: FDA-Public Use
  Company Number: SG-LUPIN PHARMACEUTICALS INC.-2021-23498

PATIENT
  Age: 32 Year
  Sex: Female

DRUGS (6)
  1. BETAMETHASONE [Suspect]
     Active Substance: BETAMETHASONE
     Indication: Maternal therapy to enhance foetal lung maturity
     Dosage: UNK, (FORMULATION: INJECTION)
     Route: 030
  2. ENOXAPARIN [Suspect]
     Active Substance: ENOXAPARIN
     Indication: Thrombosis prophylaxis
     Dosage: UNK
     Route: 058
  3. ENOXAPARIN [Suspect]
     Active Substance: ENOXAPARIN
     Indication: Hypertriglyceridaemia
  4. INSULIN NOS [Suspect]
     Active Substance: INSULIN NOS
     Indication: Metabolic acidosis
     Dosage: UNK, (INSULIN WITH A 10% GLUCOSE INFUSION)
     Route: 042
  5. INSULIN NOS [Suspect]
     Active Substance: INSULIN NOS
     Dosage: UNK, QD
     Route: 058
  6. DEXTROSE [Suspect]
     Active Substance: DEXTROSE
     Indication: Metabolic acidosis
     Dosage: UNK, (INSULIN WITH A 10% GLUCOSE INFUSION)
     Route: 042

REACTIONS (2)
  - Exposure during pregnancy [Unknown]
  - Normal newborn [Unknown]
